FAERS Safety Report 7777898-2 (Version None)
Quarter: 2011Q3

REPORT INFORMATION
  Report Type: 
  Country: None (occurrence: None)
  Receive Date: 20110926
  Receipt Date: 20110916
  Transmission Date: 20111222
  Serious: No
  Sender: FDA-Public Use
  Company Number: US-BIOGENIDEC-2011BI035902

PATIENT
  Age: 37 Year
  Sex: Female

DRUGS (4)
  1. STEROIDS [Concomitant]
     Indication: PRODUCT USED FOR UNKNOWN INDICATION
  2. TYSABRI [Suspect]
     Indication: MULTIPLE SCLEROSIS
     Route: 042
     Dates: start: 20061121
  3. TYSABRI [Suspect]
     Route: 042
     Dates: end: 20101101
  4. AVONEX [Concomitant]
     Indication: MULTIPLE SCLEROSIS
     Route: 030
     Dates: start: 20031105

REACTIONS (8)
  - OVARIAN CYST [None]
  - MUSCLE SPASMS [None]
  - GAIT DISTURBANCE [None]
  - ASTHENIA [None]
  - MUSCLE ATROPHY [None]
  - DRUG EFFECT DECREASED [None]
  - WEIGHT DECREASED [None]
  - FATIGUE [None]
